FAERS Safety Report 17603968 (Version 2)
Quarter: 2020Q2

REPORT INFORMATION
  Report Type: Report from Study
  Country: None (occurrence: DE)
  Receive Date: 20200331
  Receipt Date: 20200408
  Transmission Date: 20200713
  Serious: Yes (Hospitalization, Other)
  Sender: FDA-Public Use
  Company Number: DE-ABBVIE-20K-062-3344747-00

PATIENT
  Age: 54 Year
  Sex: Female
  Weight: 42.6 kg

DRUGS (9)
  1. ESOMEPRAZOL [Concomitant]
     Active Substance: ESOMEPRAZOLE
     Indication: PRODUCT USED FOR UNKNOWN INDICATION
  2. SORBIC [Suspect]
     Active Substance: ASCORBIC ACID
     Indication: PRODUCT USED FOR UNKNOWN INDICATION
     Route: 065
  3. TRAMAL [Suspect]
     Active Substance: TRAMADOL
     Indication: PRODUCT USED FOR UNKNOWN INDICATION
     Route: 065
  4. HUMIRA [Suspect]
     Active Substance: ADALIMUMAB
     Route: 058
     Dates: start: 20200329
  5. HUMIRA [Suspect]
     Active Substance: ADALIMUMAB
     Indication: PSORIATIC ARTHROPATHY
     Route: 058
     Dates: start: 20170129, end: 202003
  6. CIPROFLOXACIN. [Concomitant]
     Active Substance: CIPROFLOXACIN
     Indication: DIARRHOEA
     Dates: start: 201902, end: 201904
  7. HUMIRA [Suspect]
     Active Substance: ADALIMUMAB
     Indication: RHEUMATOID ARTHRITIS
     Route: 058
     Dates: start: 2016
  8. BISOPROLOL [Concomitant]
     Active Substance: BISOPROLOL
     Indication: PRODUCT USED FOR UNKNOWN INDICATION
  9. OPIPRAMOL [Concomitant]
     Active Substance: OPIPRAMOL
     Indication: PRODUCT USED FOR UNKNOWN INDICATION
     Dosage: 0.5-0.5-1

REACTIONS (49)
  - Drug intolerance [Unknown]
  - Blood urea decreased [Unknown]
  - Blood triglycerides increased [Unknown]
  - Urine ketone body present [Unknown]
  - Haemoglobinuria [Unknown]
  - Enterobiasis [Unknown]
  - Haemoglobin increased [Unknown]
  - Blood elastase decreased [Unknown]
  - Acute oesophageal mucosal lesion [Unknown]
  - Ovarian cyst [Unknown]
  - Food intolerance [Unknown]
  - Activated partial thromboplastin time shortened [Unknown]
  - Oesophageal neoplasm [Unknown]
  - Colitis [Unknown]
  - Blood elastase [Unknown]
  - Unevaluable event [Unknown]
  - Mobility decreased [Not Recovered/Not Resolved]
  - Weight decreased [Unknown]
  - Red blood cell count decreased [Unknown]
  - Granular cell tumour [Unknown]
  - Intentional product misuse [Not Recovered/Not Resolved]
  - Immunosuppression [Unknown]
  - Treatment noncompliance [Unknown]
  - pH urine decreased [Unknown]
  - Gastrooesophageal reflux disease [Unknown]
  - Gastrointestinal tract mucosal pigmentation [Unknown]
  - Granular cell tumour [Unknown]
  - Oesophageal polyp [Unknown]
  - Gastric mucosa erythema [Unknown]
  - Volvulus [Unknown]
  - Abdominal pain [Recovered/Resolved]
  - Diarrhoea [Unknown]
  - Ectopic gastric mucosa [Unknown]
  - Oesophageal papilloma [Unknown]
  - Red blood cell sedimentation rate increased [Unknown]
  - Uterine leiomyoma [Unknown]
  - Aspartate aminotransferase increased [Unknown]
  - Haematuria [Unknown]
  - Chronic gastritis [Unknown]
  - Asthenia [Unknown]
  - Large intestinal obstruction [Unknown]
  - Hepatic steatosis [Unknown]
  - Tachycardia [Unknown]
  - Blood cholesterol increased [Unknown]
  - Blood potassium increased [Recovered/Resolved]
  - Fibroma [Unknown]
  - Bladder diverticulum [Unknown]
  - Ureterocele [Unknown]
  - Colitis microscopic [Unknown]

NARRATIVE: CASE EVENT DATE: 201806
